FAERS Safety Report 6639465-3 (Version None)
Quarter: 2010Q1

REPORT INFORMATION
  Report Type: 
  Country: None (occurrence: None)
  Receive Date: 20100318
  Receipt Date: 20100309
  Transmission Date: 20100710
  Serious: Yes (Other)
  Sender: FDA-Public Use
  Company Number: AU-BAXTER-2010BH006637

PATIENT
  Sex: Male

DRUGS (1)
  1. TISSEEL VH KIT [Suspect]
     Indication: TISSUE SEALING
     Route: 065
     Dates: start: 20100309, end: 20100309

REACTIONS (1)
  - DRUG INEFFECTIVE [None]
